FAERS Safety Report 5345052-X (Version None)
Quarter: 2007Q2

REPORT INFORMATION
  Report Type: 
  Country: None (occurrence: None)
  Receive Date: 20070425
  Receipt Date: 20061003
  Transmission Date: 20071010
  Serious: Yes (Hospitalization)
  Sender: FDA-Public Use
  Company Number: WAES 0610USA02684

PATIENT
  Age: 4 Year
  Sex: Male
  Weight: 15.4223 kg

DRUGS (1)
  1. SINGULAIR [Suspect]
     Indication: RHINITIS ALLERGIC
     Dosage: 4 MG/DAILY/PO
     Route: 047
     Dates: start: 20040501

REACTIONS (4)
  - CEREBELLAR ATROPHY [None]
  - CEREBRAL CYST [None]
  - CONVULSION [None]
  - NERVOUS SYSTEM DISORDER [None]
